FAERS Safety Report 22620402 (Version 1)
Quarter: 2023Q2

REPORT INFORMATION
  Report Type: Spontaneous
  Country: US (occurrence: US)
  Receive Date: 20230620
  Receipt Date: 20230620
  Transmission Date: 20230721
  Serious: No
  Sender: FDA-Public Use
  Company Number: US-LEADINGPHARMA-US-2023LEASPO00158

PATIENT
  Sex: Female

DRUGS (1)
  1. LORAZEPAM [Suspect]
     Active Substance: LORAZEPAM
     Indication: Product used for unknown indication
     Dosage: 02 TABLETS IN THE MORNING AND 01 TABLET IN THE NIGHT
     Route: 065

REACTIONS (3)
  - Nervousness [Unknown]
  - Drug ineffective [Unknown]
  - Product substitution issue [Unknown]
